FAERS Safety Report 11413056 (Version 2)
Quarter: 2015Q3

REPORT INFORMATION
  Report Type: Report from Study
  Country: US (occurrence: US)
  Receive Date: 20150824
  Receipt Date: 20150925
  Transmission Date: 20151125
  Serious: Yes (Hospitalization, Other)
  Sender: FDA-Public Use
  Company Number: US-RB PHARMACEUTICALS LIMITED-RB-082095-2015

PATIENT
  Age: 27 Year
  Sex: Male

DRUGS (5)
  1. SUBOXONE [Suspect]
     Active Substance: BUPRENORPHINE HYDROCHLORIDE\NALOXONE HYDROCHLORIDE
     Indication: DRUG DEPENDENCE
     Dosage: 8 MG, QD
     Route: 060
  2. SUBOXONE [Suspect]
     Active Substance: BUPRENORPHINE HYDROCHLORIDE\NALOXONE HYDROCHLORIDE
     Dosage: 16 MG, QD
     Route: 060
     Dates: start: 201505
  3. SUBOXONE [Suspect]
     Active Substance: BUPRENORPHINE HYDROCHLORIDE\NALOXONE HYDROCHLORIDE
     Dosage: TAPERED HIS DOSE AND HE TRIED TO DISCONTINUE
     Route: 060
  4. SUBOXONE [Suspect]
     Active Substance: BUPRENORPHINE HYDROCHLORIDE\NALOXONE HYDROCHLORIDE
     Dosage: SELF TAPER AND THEN DISCONTINUED TREATMENT TOWARDS THE END OF APRIL
     Route: 060
     Dates: start: 2015, end: 201504
  5. SUBOXONE [Suspect]
     Active Substance: BUPRENORPHINE HYDROCHLORIDE\NALOXONE HYDROCHLORIDE
     Indication: DRUG DEPENDENCE
     Dosage: 16 MG, QD
     Route: 060
     Dates: start: 2011

REACTIONS (14)
  - Restlessness [Recovered/Resolved]
  - Weight gain poor [Recovered/Resolved]
  - Hypotonia [Not Recovered/Not Resolved]
  - Weight decreased [Recovered/Resolved]
  - Intentional underdose [Recovered/Resolved]
  - Drug dependence [Recovered/Resolved]
  - Constipation [Not Recovered/Not Resolved]
  - Anxiety [Recovered/Resolved]
  - Respiratory arrest [Recovered/Resolved]
  - Obsessive-compulsive disorder [Recovered/Resolved]
  - Road traffic accident [Recovered/Resolved]
  - Drug withdrawal syndrome [Recovered/Resolved]
  - Muscle atrophy [Recovered/Resolved]
  - Drug dependence [Unknown]

NARRATIVE: CASE EVENT DATE: 2015
